FAERS Safety Report 6735068-0 (Version None)
Quarter: 2010Q2

REPORT INFORMATION
  Report Type: 
  Country: None (occurrence: None)
  Receive Date: 20100521
  Receipt Date: 20100511
  Transmission Date: 20101027
  Serious: Yes (Other)
  Sender: FDA-Public Use
  Company Number: DE-JNJFOC-20100302554

PATIENT
  Age: 73 Year
  Sex: Male

DRUGS (5)
  1. TAVANIC [Suspect]
     Indication: INFECTION
     Route: 048
  2. ASS-RATIOPHARM [Concomitant]
     Route: 065
  3. SIMVASTATIN [Concomitant]
     Route: 065
  4. AMLODIPINE BESYLATE [Concomitant]
     Route: 065
  5. DELIX [Concomitant]
     Route: 065

REACTIONS (6)
  - DIARRHOEA [None]
  - DYSGEUSIA [None]
  - HYPERHIDROSIS [None]
  - MUSCLE SPASMS [None]
  - PAROSMIA [None]
  - TREMOR [None]
